FAERS Safety Report 9027095 (Version 2)
Quarter: 2013Q1

REPORT INFORMATION
  Report Type: Report from Study
  Country: US (occurrence: US)
  Receive Date: 20130123
  Receipt Date: 20130307
  Transmission Date: 20140127
  Serious: Yes (Hospitalization, Other)
  Sender: FDA-Public Use
  Company Number: US-ABBOTT-13P-163-1036337-00

PATIENT
  Sex: Male
  Weight: 90.8 kg

DRUGS (16)
  1. HUMIRA [Suspect]
     Indication: RHEUMATOID ARTHRITIS
     Route: 058
     Dates: start: 2003
  2. ASPIRIN [Concomitant]
     Indication: CARDIAC DISORDER
  3. CALCIUM + VIT D [Concomitant]
     Indication: MINERAL SUPPLEMENTATION
  4. COREG [Concomitant]
     Indication: HYPERTENSION
  5. DIOVAN [Concomitant]
     Indication: HYPERTENSION
  6. FLOMAX [Concomitant]
     Indication: PROSTATOMEGALY
  7. GLYBURIDE [Concomitant]
     Indication: DIABETES MELLITUS
  8. LORATIDINE [Concomitant]
     Indication: HYPERSENSITIVITY
  9. MULTIVITAMINS [Concomitant]
     Indication: VITAMIN SUPPLEMENTATION
  10. OMEGA 3 [Concomitant]
     Indication: SUPPLEMENTATION THERAPY
  11. OMEPRAZOLE [Concomitant]
     Indication: GASTROOESOPHAGEAL REFLUX DISEASE
  12. OXYCODONE [Concomitant]
     Indication: PAIN
  13. PRAVACHOL [Concomitant]
     Indication: BLOOD CHOLESTEROL INCREASED
  14. SOTALOL [Concomitant]
     Indication: HYPERTENSION
  15. SPIRONOLACTONE [Concomitant]
     Indication: HYPERTENSION
  16. SUPER B COMPLEX [Concomitant]
     Indication: VITAMIN SUPPLEMENTATION

REACTIONS (3)
  - Convulsion [Recovered/Resolved]
  - Fall [Recovered/Resolved]
  - Head injury [Recovered/Resolved]
